FAERS Safety Report 6445736-6 (Version None)
Quarter: 2009Q4

REPORT INFORMATION
  Report Type: 
  Country: None (occurrence: None)
  Receive Date: 20091116
  Receipt Date: 20091103
  Transmission Date: 20100525
  Serious: Yes (Death, Hospitalization, Other)
  Sender: FDA-Public Use
  Company Number: 2009-04613

PATIENT
  Age: 83 Year
  Sex: Male
  Weight: 86.6 kg

DRUGS (5)
  1. VELCADE [Suspect]
     Indication: MULTIPLE MYELOMA
     Dosage: 1.3 MG/M2, INTRAVENOUS
     Route: 042
     Dates: start: 20091027, end: 20091027
  2. COREG [Concomitant]
  3. PLAVIX [Concomitant]
  4. ASPIRIN [Concomitant]
  5. FLOMAX [Concomitant]

REACTIONS (3)
  - COMA [None]
  - HAEMATEMESIS [None]
  - PNEUMONIA [None]
